FAERS Safety Report 11674465 (Version 1)
Quarter: 2015Q4

REPORT INFORMATION
  Report Type: Report from Study
  Country: US (occurrence: US)
  Receive Date: 20151028
  Receipt Date: 20151028
  Transmission Date: 20160304
  Serious: No
  Sender: FDA-Public Use
  Company Number: PHEH2015US021770

PATIENT
  Sex: Female

DRUGS (5)
  1. EXTAVIA [Suspect]
     Active Substance: INTERFERON BETA-1B
     Dosage: UNK
  2. EXTAVIA [Suspect]
     Active Substance: INTERFERON BETA-1B
     Dosage: WEEK 3-4: 0.125MG (0.5ML), QOD
     Route: 058
  3. EXTAVIA [Suspect]
     Active Substance: INTERFERON BETA-1B
     Dosage: WEEK 7: 0.25MG (0.75ML), QOD
     Route: 058
  4. EXTAVIA [Suspect]
     Active Substance: INTERFERON BETA-1B
     Dosage: WEEK 5-6: 0.1875MG (0.75ML), QOD
     Route: 058
  5. EXTAVIA [Suspect]
     Active Substance: INTERFERON BETA-1B
     Indication: MULTIPLE SCLEROSIS
     Dosage: WEEK 1-2: 0.0625MG (0.25ML), QOD
     Route: 058
     Dates: start: 20151019

REACTIONS (2)
  - Influenza like illness [Recovered/Resolved]
  - Injection site pain [Recovered/Resolved]
